FAERS Safety Report 18955716 (Version 1)
Quarter: 2021Q1

REPORT INFORMATION
  Report Type: Spontaneous
  Country: EG (occurrence: EG)
  Receive Date: 20210301
  Receipt Date: 20210301
  Transmission Date: 20210420
  Serious: Yes (Other)
  Sender: FDA-Public Use
  Company Number: EG-PFIZER INC-2020448870

PATIENT
  Age: 51 Year
  Sex: Female

DRUGS (1)
  1. XALKORI [Suspect]
     Active Substance: CRIZOTINIB
     Indication: LUNG CANCER METASTATIC
     Dosage: 250 MG, 2X/DAY
     Route: 048
     Dates: start: 201902

REACTIONS (4)
  - Vertigo [Unknown]
  - Cholecystitis [Unknown]
  - Vomiting [Unknown]
  - Fatigue [Unknown]
